FAERS Safety Report 7441864-7 (Version None)
Quarter: 2011Q2

REPORT INFORMATION
  Report Type: 
  Country: None (occurrence: None)
  Receive Date: 20110428
  Receipt Date: 20110418
  Transmission Date: 20111010
  Serious: Yes (Hospitalization, Other)
  Sender: FDA-Public Use
  Company Number: US-ELI_LILLY_AND_COMPANY-US201103002248

PATIENT
  Sex: Female

DRUGS (2)
  1. HUMALOG [Suspect]
  2. ZYPREXA [Suspect]

REACTIONS (9)
  - BORDERLINE PERSONALITY DISORDER [None]
  - TYPE 2 DIABETES MELLITUS [None]
  - CHRONIC OBSTRUCTIVE PULMONARY DISEASE [None]
  - BIPOLAR I DISORDER [None]
  - MUSCULOSKELETAL DISORDER [None]
  - SUICIDE ATTEMPT [None]
  - POST-TRAUMATIC STRESS DISORDER [None]
  - HYPERTENSION [None]
  - ADJUSTMENT DISORDER [None]
